FAERS Safety Report 4482543-8 (Version None)
Quarter: 2004Q4

REPORT INFORMATION
  Report Type: 
  Country: None (occurrence: None)
  Receive Date: 20041022
  Receipt Date: 20040108
  Transmission Date: 20050328
  Serious: Yes (Hospitalization)
  Sender: FDA-Public Use
  Company Number: 200410185GDDC

PATIENT
  Age: 70 Year
  Sex: Female

DRUGS (12)
  1. TAXOTERE [Suspect]
     Indication: BREAST CANCER METASTATIC
     Route: 042
     Dates: start: 20030814, end: 20031127
  2. NAVELBINE [Suspect]
     Indication: BREAST CANCER METASTATIC
     Route: 042
     Dates: start: 20030814, end: 20031127
  3. CAPTOPRIL [Concomitant]
     Route: 048
     Dates: end: 20030815
  4. PARACETAMOL [Concomitant]
  5. NYSTATIN [Concomitant]
  6. FLUCONAZOLE [Concomitant]
  7. CEFTRIAXONE SODIUM [Concomitant]
  8. AMIKACIN [Concomitant]
  9. RANITIDINE [Concomitant]
     Dates: end: 20031128
  10. DEXAMETHASONE [Concomitant]
     Dates: start: 20031128
  11. ONDANSETRON [Concomitant]
     Dates: start: 20031127
  12. FILGRASTIM [Concomitant]
     Route: 058
     Dates: start: 20031129, end: 20031205

REACTIONS (9)
  - DIARRHOEA [None]
  - DISEASE PROGRESSION [None]
  - FEBRILE NEUTROPENIA [None]
  - GLUCOSE TOLERANCE IMPAIRED [None]
  - INFLAMMATION [None]
  - LUNG DISORDER [None]
  - LUNG INFECTION [None]
  - MUCOSAL INFLAMMATION [None]
  - SYNCOPE [None]
